FAERS Safety Report 9495549 (Version 1)
Quarter: 2013Q3

REPORT INFORMATION
  Report Type: Spontaneous
  Country: PT (occurrence: PT)
  Receive Date: 20130903
  Receipt Date: 20130903
  Transmission Date: 20140515
  Serious: Yes (Other)
  Sender: FDA-Public Use
  Company Number: PT-GILEAD-2013-0082290

PATIENT
  Age: 33 Year
  Sex: Female

DRUGS (9)
  1. TRUVADA [Suspect]
     Indication: HIV INFECTION
     Dosage: 1 DF, QD
     Route: 048
     Dates: start: 200809
  2. LOPINAVIR W/RITONAVIR [Concomitant]
     Indication: HIV INFECTION
     Dosage: UNK
     Dates: end: 201110
  3. ATAZANAVIR W/RITONAVIR [Concomitant]
     Indication: HIV INFECTION
     Dosage: 1 DF, QD
     Dates: start: 201110
  4. TRAZODONE [Concomitant]
     Indication: DEPRESSION
     Dosage: 50 MG, QD
  5. ALPRAZOLAM [Concomitant]
     Indication: DEPRESSION
     Dosage: 0.25 MG, TID
  6. RISPERIDONE [Concomitant]
     Indication: DEPRESSION
     Dosage: 1 MG, QD
  7. FLUOXETINE [Concomitant]
     Indication: DEPRESSION
     Dosage: 20 MG, QD
  8. MIRTAZAPINE [Concomitant]
     Indication: DEPRESSION
     Dosage: 15 MG, QD
  9. ACTIFOL [Concomitant]
     Indication: PREGNANCY

REACTIONS (3)
  - Gestational diabetes [Unknown]
  - Dyslipidaemia [Unknown]
  - Pregnancy [Recovered/Resolved]
